FAERS Safety Report 10417156 (Version 2)
Quarter: 2014Q3

REPORT INFORMATION
  Report Type: Spontaneous
  Country: US (occurrence: US)
  Receive Date: 20140828
  Receipt Date: 20140828
  Transmission Date: 20150326
  Serious: Yes (Hospitalization, Other)
  Sender: FDA-Public Use
  Company Number: US-009507513-2010SP044535

PATIENT
  Sex: Female

DRUGS (4)
  1. NUVARING [Suspect]
     Active Substance: ETHINYL ESTRADIOL\ETONOGESTREL
     Indication: MENSTRUAL CYCLE MANAGEMENT
     Dates: start: 200105, end: 200808
  2. GINSENG (UNSPECIFIED) [Concomitant]
  3. NUVARING [Suspect]
     Active Substance: ETHINYL ESTRADIOL\ETONOGESTREL
     Indication: CONTRACEPTION
  4. THIAMINE HYDROCHLORIDE. [Concomitant]
     Active Substance: THIAMINE HYDROCHLORIDE

REACTIONS (4)
  - Dysfunctional uterine bleeding [Unknown]
  - Off label use [Unknown]
  - Pulmonary embolism [Unknown]
  - Pleurisy [Unknown]

NARRATIVE: CASE EVENT DATE: 20010906
